FAERS Safety Report 16980834 (Version 1)
Quarter: 2019Q4

REPORT INFORMATION
  Report Type: Spontaneous
  Country: CA (occurrence: CA)
  Receive Date: 20191031
  Receipt Date: 20191031
  Transmission Date: 20200122
  Serious: Yes (Other)
  Sender: FDA-Public Use
  Company Number: CA-ALLERGAN-1943591US

PATIENT
  Sex: Female

DRUGS (15)
  1. GRAVOL [Suspect]
     Active Substance: DIMENHYDRINATE
     Indication: PRODUCT USED FOR UNKNOWN INDICATION
     Dosage: 50 MG
  2. AZATHIOPRINE. [Suspect]
     Active Substance: AZATHIOPRINE
     Indication: PRODUCT USED FOR UNKNOWN INDICATION
     Dosage: UNK
  3. COLCHICINE. [Suspect]
     Active Substance: COLCHICINE
     Dosage: 0.6 MG, QD
  4. REMICADE [Suspect]
     Active Substance: INFLIXIMAB
     Indication: BEHCET^S SYNDROME
     Dosage: UNK
     Route: 042
  5. CODEINE [Suspect]
     Active Substance: CODEINE
     Indication: PRODUCT USED FOR UNKNOWN INDICATION
     Dosage: UNK
  6. COLCHICINE. [Suspect]
     Active Substance: COLCHICINE
     Indication: APHTHOUS ULCER
     Dosage: UNK
  7. PARIET [Suspect]
     Active Substance: RABEPRAZOLE SODIUM
     Indication: PRODUCT USED FOR UNKNOWN INDICATION
     Dosage: 20 MG, BID
     Route: 048
  8. DAPSONE. [Suspect]
     Active Substance: DAPSONE
     Indication: APHTHOUS ULCER
  9. DOMPERIDONE [Suspect]
     Active Substance: DOMPERIDONE
     Indication: PRODUCT USED FOR UNKNOWN INDICATION
     Dosage: 20 MG, QD
  10. INFLIXIMAB [Suspect]
     Active Substance: INFLIXIMAB
     Indication: APHTHOUS ULCER
     Dosage: UNK
  11. REMICADE [Suspect]
     Active Substance: INFLIXIMAB
     Dosage: UNK
  12. SULCRATE [Suspect]
     Active Substance: SUCRALFATE
     Indication: PRODUCT USED FOR UNKNOWN INDICATION
     Dosage: UNK
  13. ETANERCEPT [Suspect]
     Active Substance: ETANERCEPT
     Indication: APHTHOUS ULCER
     Dosage: UNK
  14. IMURAN [Suspect]
     Active Substance: AZATHIOPRINE
     Indication: PRODUCT USED FOR UNKNOWN INDICATION
     Dosage: 150 MG, QD
  15. MORPHINE [Suspect]
     Active Substance: MORPHINE
     Indication: PRODUCT USED FOR UNKNOWN INDICATION
     Dosage: 30 MG

REACTIONS (3)
  - Aphthous ulcer [Unknown]
  - Behcet^s syndrome [Unknown]
  - Therapy non-responder [Unknown]
